FAERS Safety Report 9929319 (Version 4)
Quarter: 2014Q1

REPORT INFORMATION
  Report Type: Report from Study
  Country: GB (occurrence: GB)
  Receive Date: 20140227
  Receipt Date: 20140307
  Transmission Date: 20141002
  Serious: Yes (Hospitalization)
  Sender: FDA-Public Use
  Company Number: GB-EISAI INC-E7389-04750-SOL-GB

PATIENT
  Age: 56 Year
  Sex: Female

DRUGS (5)
  1. HALAVEN [Suspect]
     Indication: BREAST CANCER METASTATIC
     Route: 048
     Dates: start: 20140114, end: 20140211
  2. DOCUSATE [Concomitant]
  3. CYCLIZINE [Concomitant]
  4. OMEPRAZOLE [Concomitant]
  5. PARACETAMOL [Concomitant]
     Indication: ASCITES

REACTIONS (3)
  - Ascites [Recovering/Resolving]
  - Vomiting [Recovering/Resolving]
  - Fatigue [Recovering/Resolving]
